FAERS Safety Report 21908784 (Version 1)
Quarter: 2023Q1

REPORT INFORMATION
  Report Type: Spontaneous
  Country: US (occurrence: None)
  Receive Date: 20230124
  Receipt Date: 20230124
  Transmission Date: 20230418
  Serious: No
  Sender: FDA-Public Use
  Company Number: None

PATIENT
  Age: 85 Year
  Sex: Female
  Weight: 53.89 kg

DRUGS (22)
  1. CYCLOPHOSPHAMIDE [Suspect]
     Active Substance: CYCLOPHOSPHAMIDE
     Indication: Plasma cell myeloma
     Dosage: OTHER FREQUENCY : DAY 1, + 15;?
     Route: 048
  2. ACYCLOVIR [Concomitant]
     Active Substance: ACYCLOVIR
  3. ASPIRIN [Concomitant]
     Active Substance: ASPIRIN
  4. CALCIUM CITRATE [Concomitant]
     Active Substance: CALCIUM CITRATE
  5. VITAMINS [Concomitant]
     Active Substance: VITAMINS
  6. CLONAZEPAM [Concomitant]
     Active Substance: CLONAZEPAM
  7. DEXAMETHASONE [Concomitant]
     Active Substance: DEXAMETHASONE
  8. FAMCICLOVIR [Concomitant]
     Active Substance: FAMCICLOVIR
  9. FUROSEMIDE [Concomitant]
     Active Substance: FUROSEMIDE
  10. GRANISETRON [Concomitant]
     Active Substance: GRANISETRON
  11. KYPROLIS [Concomitant]
     Active Substance: CARFILZOMIB
  12. LISINOPRIL AND HYDROCHLOROTHIAZIDE [Concomitant]
     Active Substance: HYDROCHLOROTHIAZIDE\LISINOPRIL
  13. MORPHINE SULFATE [Concomitant]
     Active Substance: MORPHINE SULFATE
  14. ONDANSETRON [Concomitant]
     Active Substance: ONDANSETRON
  15. POTASSIUM CHLORIDE [Concomitant]
     Active Substance: POTASSIUM CHLORIDE
  16. MINERALS\VITAMINS [Concomitant]
     Active Substance: MINERALS\VITAMINS
  17. PROCHLORPERAZINE [Concomitant]
     Active Substance: PROCHLORPERAZINE
  18. SIMVASTATIN [Concomitant]
     Active Substance: SIMVASTATIN
  19. TRAMADOL [Concomitant]
     Active Substance: TRAMADOL
  20. VELCADE [Concomitant]
     Active Substance: BORTEZOMIB
  21. VENTOLIN [Concomitant]
     Active Substance: ALBUTEROL SULFATE
  22. ZOLEDONRIC ACID [Concomitant]

REACTIONS (1)
  - Hospice care [None]
